FAERS Safety Report 25697641 (Version 1)
Quarter: 2025Q3

REPORT INFORMATION
  Report Type: Spontaneous
  Country: AU (occurrence: AU)
  Receive Date: 20250819
  Receipt Date: 20250819
  Transmission Date: 20251021
  Serious: Yes (Other)
  Sender: ABBVIE
  Company Number: AU-ABBVIE-6416120

PATIENT
  Age: 25 Year
  Sex: Female

DRUGS (8)
  1. ADALIMUMAB [Suspect]
     Active Substance: ADALIMUMAB
     Indication: Product used for unknown indication
     Route: 058
  2. THIOGUANINE ANHYDROUS [Concomitant]
     Active Substance: THIOGUANINE ANHYDROUS
     Indication: Product used for unknown indication
     Dates: start: 202208
  3. VALIUM [Concomitant]
     Active Substance: DIAZEPAM
     Indication: Product used for unknown indication
  4. INFLECTRA [Suspect]
     Active Substance: INFLIXIMAB-DYYB
     Indication: Crohn^s disease
     Dosage: LNFLECTRA 1000 MG
     Route: 065
     Dates: start: 202301
  5. INFLECTRA [Suspect]
     Active Substance: INFLIXIMAB-DYYB
     Indication: Crohn^s disease
     Dosage: LNFLECTRA 1000 MG
     Route: 065
     Dates: start: 202008
  6. INFLECTRA [Suspect]
     Active Substance: INFLIXIMAB-DYYB
     Indication: Crohn^s disease
     Dosage: LNFLECTRA 1000 MG
     Route: 065
     Dates: start: 202102
  7. INFLECTRA [Suspect]
     Active Substance: INFLIXIMAB-DYYB
     Indication: Crohn^s disease
     Dosage: LNFLECTRA 1000 MG. ESCALATED FREQUENCY
     Route: 065
     Dates: start: 202109, end: 202203
  8. PAROXETINE [Concomitant]
     Active Substance: PAROXETINE
     Indication: Product used for unknown indication
     Dates: start: 2019

REACTIONS (24)
  - Condition aggravated [Not Recovered/Not Resolved]
  - Abdominal distension [Unknown]
  - Intestinal dilatation [Unknown]
  - Liver function test abnormal [Unknown]
  - Restless legs syndrome [Unknown]
  - Therapy non-responder [Unknown]
  - Off label use [Unknown]
  - Alanine aminotransferase abnormal [Unknown]
  - Arthralgia [Unknown]
  - Arthritis enteropathic [Unknown]
  - Aspartate aminotransferase increased [Unknown]
  - Blood bilirubin increased [Unknown]
  - Fatigue [Unknown]
  - Hidradenitis [Unknown]
  - Polycystic ovarian syndrome [Unknown]
  - Gastrointestinal disorder [Unknown]
  - Gastrointestinal anastomotic stenosis [Unknown]
  - Crohn^s disease [Not Recovered/Not Resolved]
  - Cholelithiasis [Not Recovered/Not Resolved]
  - Anxiety [Not Recovered/Not Resolved]
  - Obesity [Not Recovered/Not Resolved]
  - Pancreatitis [Not Recovered/Not Resolved]
  - Abdominal pain [Unknown]
  - Anastomotic ulcer [Unknown]

NARRATIVE: CASE EVENT DATE: 20200801
